FAERS Safety Report 21033113 (Version 4)
Quarter: 2024Q3

REPORT INFORMATION
  Report Type: Report from Study
  Country: JP (occurrence: JP)
  Receive Date: 20220701
  Receipt Date: 20240909
  Transmission Date: 20241017
  Serious: Yes (Other)
  Sender: ASTELLAS
  Company Number: JP-ASTELLAS-2022JP009769

PATIENT
  Age: 87 Year
  Sex: Male
  Weight: 81 kg

DRUGS (7)
  1. PADCEV [Suspect]
     Active Substance: ENFORTUMAB VEDOTIN-EJFV
     Indication: Bladder cancer
     Route: 065
     Dates: start: 20220112, end: 20220119
  2. EPIRUBICIN [Concomitant]
     Active Substance: EPIRUBICIN
     Indication: Transitional cell carcinoma
     Route: 043
     Dates: start: 2019, end: 2021
  3. LINAGLIPTIN [Concomitant]
     Active Substance: LINAGLIPTIN
     Indication: Diabetes mellitus
     Route: 048
     Dates: start: 20220119, end: 20220817
  4. LEUPLIN [Concomitant]
     Active Substance: LEUPROLIDE ACETATE
     Indication: Product used for unknown indication
     Route: 065
  5. INSULIN NOS [Concomitant]
     Active Substance: INSULIN NOS
     Indication: Diabetes mellitus
     Dosage: 6 UNITS
     Route: 065
     Dates: start: 20220131
  6. Glucose drip infusion [Concomitant]
     Indication: Nausea
     Route: 065
     Dates: start: 20220119, end: 20220127
  7. Glucose drip infusion [Concomitant]
     Indication: Vomiting

REACTIONS (8)
  - Diabetes mellitus [Recovered/Resolved]
  - Vomiting [Recovered/Resolved]
  - Nausea [Recovered/Resolved]
  - Alopecia [Unknown]
  - Decreased appetite [Unknown]
  - Anaemia [Unknown]
  - Neutrophil count decreased [Unknown]
  - Fatigue [Unknown]

NARRATIVE: CASE EVENT DATE: 20220119
